FAERS Safety Report 8091720-9 (Version None)
Quarter: 2012Q1

REPORT INFORMATION
  Report Type: 
  Country: None (occurrence: None)
  Receive Date: 20120130
  Receipt Date: 20120130
  Transmission Date: 20120608
  Serious: Yes (Hospitalization)
  Sender: FDA-Public Use
  Company Number: None

PATIENT
  Age: 70 Year
  Sex: Female
  Weight: 104.7 kg

DRUGS (1)
  1. CARBOPLATIN AUC [Suspect]

REACTIONS (13)
  - ASTHENIA [None]
  - DEPRESSION [None]
  - BLOOD CREATININE INCREASED [None]
  - IMPLANT SITE INFECTION [None]
  - HAEMOGLOBIN DECREASED [None]
  - VOMITING [None]
  - DIARRHOEA [None]
  - HYPOTENSION [None]
  - NEUTROPENIA [None]
  - NAUSEA [None]
  - DECREASED APPETITE [None]
  - DEHYDRATION [None]
  - CHEST PAIN [None]
